FAERS Safety Report 8387420-8 (Version None)
Quarter: 2012Q2

REPORT INFORMATION
  Report Type: 
  Country: None (occurrence: None)
  Receive Date: 20120525
  Receipt Date: 20120522
  Transmission Date: 20120825
  Serious: Yes (Hospitalization, Other)
  Sender: FDA-Public Use
  Company Number: US-PFIZER INC-2012096865

PATIENT
  Sex: Male
  Weight: 104 kg

DRUGS (11)
  1. REVATIO [Suspect]
     Indication: VASODILATATION
     Dosage: UNK
     Dates: start: 20120417
  2. SIMVASTATIN [Concomitant]
     Indication: BLOOD CHOLESTEROL INCREASED
     Dosage: UNK
  3. HUMULIN R [Concomitant]
     Dosage: 40 UNITS TWO TIMES DAILY
  4. REVATIO [Suspect]
     Indication: PULMONARY HYPERTENSION
     Dosage: 20 MG, 3X/DAY
     Route: 048
     Dates: start: 20120107
  5. ACETYLSALICYLIC ACID [Concomitant]
     Indication: CARDIOVASCULAR DISORDER
     Dosage: 81 MG, 1X/DAY
  6. LISINOPRIL [Concomitant]
     Dosage: 40 MG, 2X/DAY
  7. LASIX [Concomitant]
     Dosage: 80MG IN THE MORNING AND 40MG IN THE EVENING
  8. POTASSIUM [Concomitant]
     Dosage: UNK
  9. LOPRESSOR [Concomitant]
     Indication: BLOOD PRESSURE ABNORMAL
     Dosage: 100 MG, 2X/DAY
  10. FERROUS SULFATE TAB [Concomitant]
     Dosage: 325 MG, 1X/DAY
  11. REVATIO [Suspect]
     Dosage: 20 MG, UNK

REACTIONS (9)
  - PNEUMONIA [None]
  - PALPITATIONS [None]
  - HAEMOGLOBIN DECREASED [None]
  - TACHYCARDIA [None]
  - ATRIAL FLUTTER [None]
  - CHEST PAIN [None]
  - OXYGEN SATURATION DECREASED [None]
  - CHRONIC OBSTRUCTIVE PULMONARY DISEASE [None]
  - BLOOD CREATININE INCREASED [None]
